FAERS Safety Report 7275162-1 (Version None)
Quarter: 2011Q1

REPORT INFORMATION
  Report Type: 
  Country: None (occurrence: None)
  Receive Date: 20110204
  Receipt Date: 20110125
  Transmission Date: 20110831
  Serious: Yes (Hospitalization)
  Sender: FDA-Public Use
  Company Number: PHHO2011GB01748

PATIENT
  Sex: Male

DRUGS (5)
  1. BLINDED NO TREATMENT RECEIVED [Suspect]
     Route: 048
  2. COMPARATOR ENALAPRIL [Suspect]
     Indication: CARDIAC FAILURE
     Route: 048
  3. BLINDED ALISKIREN [Suspect]
     Route: 048
  4. ALISKIREN [Suspect]
     Indication: CARDIAC FAILURE
     Route: 048
  5. ENALAPRIL MALEATE [Suspect]
     Route: 048

REACTIONS (3)
  - CARDIAC FAILURE [None]
  - URINARY TRACT INFECTION [None]
  - DYSPNOEA [None]
